FAERS Safety Report 5233316-X (Version None)
Quarter: 2007Q1

REPORT INFORMATION
  Report Type: 
  Country: None (occurrence: None)
  Receive Date: 20070206
  Receipt Date: 20070124
  Transmission Date: 20070707
  Serious: No
  Sender: FDA-Public Use
  Company Number: 2006S1011842

PATIENT
  Age: 51 Year
  Sex: Male
  Weight: 102.0593 kg

DRUGS (4)
  1. FENTANYL TRANSDERMAL SYSTEM [Suspect]
     Indication: BACK INJURY
     Dosage: 75 UG/HR; EVERY 3 DAYS; TRANSDERMAL
     Route: 062
     Dates: start: 20050201
  2. ENOXAPARIN SODIUM [Concomitant]
  3. WARFARIN SODIUM [Concomitant]
  4. LEVOTHYROXINE SODIUM [Concomitant]

REACTIONS (7)
  - DRUG EFFECT DECREASED [None]
  - HEADACHE [None]
  - LETHARGY [None]
  - MALAISE [None]
  - NAUSEA [None]
  - PAIN [None]
  - PHARMACEUTICAL PRODUCT COMPLAINT [None]
